FAERS Safety Report 18948761 (Version 2)
Quarter: 2021Q2

REPORT INFORMATION
  Report Type: Spontaneous
  Country: JP (occurrence: JP)
  Receive Date: 20210226
  Receipt Date: 20210614
  Transmission Date: 20210717
  Serious: Yes (Hospitalization)
  Sender: FDA-Public Use
  Company Number: JP-LUPIN PHARMACEUTICALS INC.-2021-02282

PATIENT
  Age: 43 Year
  Sex: Male

DRUGS (5)
  1. BUDESONIDE. [Suspect]
     Active Substance: BUDESONIDE
     Indication: RECTAL ULCER
  2. BUDESONIDE. [Suspect]
     Active Substance: BUDESONIDE
     Indication: PROCTITIS ULCERATIVE
     Dosage: UNK UNK, QD
     Route: 054
  3. MESALAZINE [Suspect]
     Active Substance: MESALAMINE
     Dosage: UNK (SUPPOSITORY)
     Route: 054
  4. MESALAZINE [Suspect]
     Active Substance: MESALAMINE
     Indication: RECTAL ULCER
     Dosage: UNK (DOSE INCREASED)
     Route: 048
  5. MESALAZINE [Suspect]
     Active Substance: MESALAMINE
     Indication: PROCTITIS ULCERATIVE
     Dosage: UNK UNK, QD
     Route: 048

REACTIONS (2)
  - Drug ineffective for unapproved indication [Unknown]
  - Product use in unapproved indication [Unknown]
